FAERS Safety Report 8116690-6 (Version None)
Quarter: 2012Q1

REPORT INFORMATION
  Report Type: 
  Country: None (occurrence: None)
  Receive Date: 20120206
  Receipt Date: 20120127
  Transmission Date: 20120608
  Serious: Yes (Other)
  Sender: FDA-Public Use
  Company Number: PHEH2012US002424

PATIENT
  Sex: Female

DRUGS (2)
  1. VALTURNA [Suspect]
     Dosage: 1 DF, QD
     Route: 048
  2. SPIRONOLACTONE [Concomitant]
     Indication: POLYURIA

REACTIONS (9)
  - DYSPNOEA [None]
  - WEIGHT INCREASED [None]
  - SWELLING [None]
  - SINUS DISORDER [None]
  - DEPRESSED MOOD [None]
  - PO2 DECREASED [None]
  - PLEURAL EFFUSION [None]
  - PERICARDIAL EFFUSION [None]
  - BRONCHITIS [None]
